FAERS Safety Report 4980739-X (Version None)
Quarter: 2006Q2

REPORT INFORMATION
  Report Type: 
  Country: None (occurrence: None)
  Receive Date: 20060424
  Receipt Date: 20051006
  Transmission Date: 20061013
  Serious: Yes (Hospitalization, Other)
  Sender: FDA-Public Use
  Company Number: US-MERCK-0510USA05808

PATIENT
  Age: 47 Year
  Sex: Male
  Weight: 102 kg

DRUGS (2)
  1. VIOXX [Suspect]
     Indication: GOUT
     Route: 048
     Dates: start: 20031201, end: 20041030
  2. VIOXX [Suspect]
     Indication: ARTHROPATHY
     Route: 048
     Dates: start: 20031201, end: 20041030

REACTIONS (8)
  - BLINDNESS [None]
  - CAROTID ARTERY DISEASE [None]
  - CEREBROVASCULAR ACCIDENT [None]
  - HYPERTENSION [None]
  - MIGRAINE [None]
  - NEPHROLITHIASIS [None]
  - PNEUMOCONIOSIS [None]
  - TRANSIENT ISCHAEMIC ATTACK [None]
